FAERS Safety Report 23801671 (Version 1)
Quarter: 2024Q2

REPORT INFORMATION
  Report Type: Spontaneous
  Country: ZA (occurrence: ZA)
  Receive Date: 20240501
  Receipt Date: 20240501
  Transmission Date: 20240716
  Serious: Yes (Death)
  Sender: FDA-Public Use
  Company Number: ZA-ABBOTT-2024A-1380692

PATIENT
  Age: 73 Year
  Sex: Female

DRUGS (21)
  1. CREON [Suspect]
     Active Substance: PANCRELIPASE AMYLASE\PANCRELIPASE LIPASE\PANCRELIPASE PROTEASE
     Indication: Pancreatic failure
     Dosage: TAKE ONE CAPSULE WITH MEALS?CREON 25000 (PANCREATIN)
     Route: 048
  2. GRANTRYL [Concomitant]
     Indication: Product used for unknown indication
     Dosage: 3MG D1, D8, D15
     Route: 048
  3. CIMETIDINE [Concomitant]
     Active Substance: CIMETIDINE
     Indication: Dyspepsia
     Dosage: 200MG D1, D8, D15?CIMETIDINE (CIMETIDINE)
     Route: 048
  4. GEMCITABINE HYDROCHLORIDE [Concomitant]
     Active Substance: GEMCITABINE HYDROCHLORIDE
     Indication: Chemotherapy
     Dosage: 1700 MG D1, D8, D15?CYTIGEM (GEMCITABINE  HYDROCHLORIDE)
     Route: 048
  5. ESCITALOPRAM OXALATE [Concomitant]
     Active Substance: ESCITALOPRAM OXALATE
     Indication: Depression
     Dosage: TAKE ONE TABLET DAILY?ACCORD ESCITALOPRAM (ESCITALOPRAM)
     Route: 048
  6. CAPECITABINE [Concomitant]
     Active Substance: CAPECITABINE
     Indication: Chemotherapy
     Dosage: PECASET (CAPECITABINE)
     Route: 048
  7. GEMCITABINE HYDROCHLORIDE [Concomitant]
     Active Substance: GEMCITABINE HYDROCHLORIDE
     Indication: Chemotherapy
     Dosage: 1700 MG D1, D8, D15?CYTIGEM (GEMCITABINE HYDROCHLORIDE)
     Route: 048
  8. FEROVANCE [Concomitant]
     Indication: Product used for unknown indication
     Route: 048
  9. PEGFILGRASTIM [Concomitant]
     Active Substance: PEGFILGRASTIM
     Indication: Product used for unknown indication
     Dosage: 6 MG AS DIRECTED?PEGFILGRASTIM MYLAN (PEGFILGRASTIM)
     Route: 048
  10. BISOPROLOL FUMARATE [Concomitant]
     Active Substance: BISOPROLOL FUMARATE
     Indication: Hypertension
     Dosage: TAKE ONE TABLET DAILY?BISLO (BISOPROLOL)
     Route: 048
  11. CLINDAMYCIN HYDROCHLORIDE [Concomitant]
     Active Substance: CLINDAMYCIN HYDROCHLORIDE
     Indication: Product used for unknown indication
     Dosage: CLINDAHEXAL (CLINDAMYCIN)
     Route: 048
  12. NEUROBION [Concomitant]
     Active Substance: CYANOCOBALAMIN\PYRIDOXINE\THIAMINE
     Indication: Product used for unknown indication
     Dosage: TO BE INJECTED AT THE ONCOLOGY CLINIC
     Route: 058
  13. CLOBAZAM [Concomitant]
     Active Substance: CLOBAZAM
     Indication: Anxiety
     Dosage: URBANOL (CLOBAZAM)
     Route: 048
  14. SIMVASTATIN [Concomitant]
     Active Substance: SIMVASTATIN
     Indication: Blood cholesterol
     Dosage: TAKE ONE TABLET DAILY?ADCO-SIMVASTATIN (SIMVASTATIN)
     Route: 048
  15. ACETAMINOPHEN\CAFFEINE\CODEINE\DOXYLAMINE [Concomitant]
     Active Substance: ACETAMINOPHEN\CAFFEINE\CODEINE\DOXYLAMINE
     Indication: Product used for unknown indication
     Dosage: AS DIRECTED
     Route: 048
  16. GRANISETRON FRESENIUS [Concomitant]
     Indication: Product used for unknown indication
     Dosage: 3MG D1, D8, D15?GRANISETRON FRESENIUS (GRANISETRON)
     Route: 048
  17. ILIADIN [Concomitant]
     Indication: Product used for unknown indication
     Dosage: 0.5 MG AS DIRECTED?ILIADIN (OXYMETAZOLINE)
     Route: 048
  18. ZOLPIDEM TARTRATE [Concomitant]
     Active Substance: ZOLPIDEM TARTRATE
     Indication: Sleep disorder
     Dosage: ONE TABLET AT NIGHT?ADCO-ZOLPIDEM  HEMITARTRATE (ZOLPIDEM HEMITARTRATE)
     Route: 048
  19. TABALON [Concomitant]
     Indication: Product used for unknown indication
     Dosage: 8MG D1, D8, D15?TAGALON (DEXAMETHASONE)
     Route: 048
  20. DEXONA [Concomitant]
     Indication: Product used for unknown indication
     Dosage: 8MG D1, D8, D15?DEXONA (DEXAMETHASONE)
     Route: 048
  21. ESCITALOPRAM [Concomitant]
     Active Substance: ESCITALOPRAM OXALATE
     Indication: Depression
     Dosage: TAKE ONE TABLET IMMEDIATELY?LEXAMIL (ESCITALOPRAM)
     Route: 048

REACTIONS (1)
  - Pancreatic carcinoma [Fatal]
